FAERS Safety Report 9182408 (Version 1)
Quarter: 2012Q4

REPORT INFORMATION
  Report Type: 
  Country: US (occurrence: US)
  Receive Date: 20121030
  Receipt Date: 20121030
  Transmission Date: 20130627
  Serious: No
  Sender: FDA-Public Use
  Company Number: US-GLAXOSMITHKLINE-A0956582A

PATIENT
  Age: 72 Year
  Sex: Female

DRUGS (6)
  1. SUMATRIPTAN [Suspect]
     Indication: MIGRAINE
     Dosage: 1UNIT As required
     Route: 045
     Dates: start: 2008
  2. TOPAMAX [Concomitant]
     Indication: MIGRAINE PROPHYLAXIS
  3. KEPPRA [Concomitant]
     Indication: MIGRAINE PROPHYLAXIS
  4. LIPITOR [Concomitant]
     Indication: BLOOD CHOLESTEROL INCREASED
  5. EVISTA [Concomitant]
     Indication: OSTEOPENIA
  6. METOPROLOL [Concomitant]
     Indication: HEART RATE IRREGULAR
     Dates: start: 2010

REACTIONS (2)
  - Drug ineffective [Not Recovered/Not Resolved]
  - Product quality issue [Not Recovered/Not Resolved]
